FAERS Safety Report 6426172-5 (Version None)
Quarter: 2009Q4

REPORT INFORMATION
  Report Type: 
  Country: None (occurrence: None)
  Receive Date: 20091104
  Receipt Date: 20091028
  Transmission Date: 20100525
  Serious: No
  Sender: FDA-Public Use
  Company Number: US-BAYER-200937669NA

PATIENT
  Sex: Female

DRUGS (1)
  1. AVELOX [Suspect]
     Indication: URINARY TRACT INFECTION
     Dosage: UNIT DOSE: 400 MG
     Dates: start: 20091001

REACTIONS (2)
  - LIP SWELLING [None]
  - SWOLLEN TONGUE [None]
